FAERS Safety Report 10225038 (Version 1)
Quarter: 2014Q2

REPORT INFORMATION
  Report Type: Report from Study
  Country: BR (occurrence: BR)
  Receive Date: 20140609
  Receipt Date: 20140609
  Transmission Date: 20141212
  Serious: Yes (Hospitalization)
  Sender: FDA-Public Use
  Company Number: PHHY2014BR068536

PATIENT
  Sex: Female

DRUGS (7)
  1. ZOTEON PODHALER [Suspect]
     Dosage: EVERY OTHER MONTH
  2. OMEPRAZOLE [Suspect]
     Dosage: UKN
  3. CIPROFLOXACIN [Suspect]
     Dosage: UKN
  4. PANCREATIN [Suspect]
     Dosage: UKN
  5. EMAMA [Suspect]
     Dosage: UKN
  6. DORNASE ALFA [Suspect]
     Dosage: UKN
  7. AEROLIN [Suspect]
     Dosage: UKN

REACTIONS (2)
  - Oxygen saturation decreased [Unknown]
  - Malaise [Unknown]
